FAERS Safety Report 6493962-2 (Version None)
Quarter: 2009Q4

REPORT INFORMATION
  Report Type: 
  Country: None (occurrence: None)
  Receive Date: 20091214
  Receipt Date: 20081202
  Transmission Date: 20100525
  Serious: No
  Sender: FDA-Public Use
  Company Number: US-BRISTOL-MYERS SQUIBB COMPANY-14427017

PATIENT
  Age: 8 Year
  Sex: Female
  Weight: 36 kg

DRUGS (1)
  1. ABILIFY [Suspect]
     Indication: BIPOLAR DISORDER

REACTIONS (3)
  - CONFUSIONAL STATE [None]
  - FEELING ABNORMAL [None]
  - SOCIAL AVOIDANT BEHAVIOUR [None]
